FAERS Safety Report 6874840-3 (Version None)
Quarter: 2010Q2

REPORT INFORMATION
  Report Type: 
  Country: None (occurrence: None)
  Receive Date: 20100610
  Receipt Date: 20100414
  Transmission Date: 20101027
  Serious: No
  Sender: FDA-Public Use
  Company Number: 2010SP022008

PATIENT
  Age: 17 Year
  Sex: Male
  Weight: 97.5234 kg

DRUGS (3)
  1. SAPHRIS [Suspect]
     Indication: AUTISM
     Dosage: 5 MG;BID;SL
     Route: 060
     Dates: start: 20100403
  2. VALPROIC ACID [Concomitant]
  3. THORAZINE [Concomitant]

REACTIONS (2)
  - SOMNOLENCE [None]
  - WRONG TECHNIQUE IN DRUG USAGE PROCESS [None]
